FAERS Safety Report 4429514-5 (Version None)
Quarter: 2004Q3

REPORT INFORMATION
  Report Type: 
  Country: None (occurrence: None)
  Receive Date: 20040816
  Receipt Date: 20040829
  Transmission Date: 20050211
  Serious: Yes (Other)
  Sender: FDA-Public Use
  Company Number: B0341752A

PATIENT
  Age: 38 Year
  Sex: Female

DRUGS (4)
  1. EPIVIR [Suspect]
     Indication: HIV INFECTION
     Dosage: 100 MG/ TWICE PER DAY/ ORAL
     Route: 048
  2. STAVUDINE (STAVUDINE) [Suspect]
     Indication: HIV INFECTION
     Dosage: 100 MG/ TWICE PER DAY/ ORAL
     Route: 048
  3. INDINAVIR SULFATE (INDINAVIR SULFATE) [Suspect]
     Indication: HIV INFECTION
     Dosage: 100 MG/ TWICE PER DAY/ ORAL
     Route: 048
  4. RITONAVIR (RITONAVIR) [Suspect]
     Indication: HIV INFECTION
     Dosage: 100 MG/ TWICE PER DAY/ ORAL
     Route: 048

REACTIONS (8)
  - ABDOMINAL PAIN [None]
  - ANTI-HBE ANTIBODY POSITIVE [None]
  - BLOOD ALBUMIN DECREASED [None]
  - HEPATIC FIBROSIS [None]
  - HEPATIC NECROSIS [None]
  - IMMUNE RECONSTITUTION SYNDROME [None]
  - INTERNATIONAL NORMALISED RATIO DECREASED [None]
  - JAUNDICE [None]
